FAERS Safety Report 9752813 (Version 1)
Quarter: 2013Q4

REPORT INFORMATION
  Report Type: Spontaneous
  Country: US (occurrence: None)
  Receive Date: 20131212
  Receipt Date: 20131212
  Transmission Date: 20140711
  Serious: No
  Sender: FDA-Public Use
  Company Number: None

PATIENT
  Age: 78 Year
  Sex: Male
  Weight: 74.39 kg

DRUGS (7)
  1. XARELTO [Suspect]
     Indication: THROMBOSIS PROPHYLAXIS
     Dosage: 1 TABLET QD, ORAL
     Route: 048
     Dates: start: 20131204, end: 20131210
  2. XARELTO [Suspect]
     Indication: THROMBOSIS PROPHYLAXIS
     Dosage: 1 TABLET QD, ORAL
     Route: 048
     Dates: start: 20131204, end: 20131210
  3. XARELTO [Suspect]
     Indication: KNEE ARTHROPLASTY
     Dosage: 1 TABLET QD, ORAL
     Route: 048
     Dates: start: 20131204, end: 20131210
  4. ACETAMINOPHEN [Concomitant]
  5. VITAMIN C [Concomitant]
  6. BISACODY [Concomitant]
  7. CALCIUM CARBONATE [Concomitant]

REACTIONS (4)
  - Pneumonia [None]
  - Pulmonary embolism [None]
  - Atrial fibrillation [None]
  - Tachycardia [None]
